FAERS Safety Report 20486472 (Version 3)
Quarter: 2022Q1

REPORT INFORMATION
  Report Type: Spontaneous
  Country: US (occurrence: US)
  Receive Date: 20220217
  Receipt Date: 20220317
  Transmission Date: 20220423
  Serious: Yes (Other)
  Sender: FDA-Public Use
  Company Number: US-BAYER-2022A024416

PATIENT
  Age: 33 Year
  Sex: Female

DRUGS (1)
  1. MIRENA [Suspect]
     Active Substance: LEVONORGESTREL
     Indication: Contraception
     Dosage: 20?G/DAY
     Route: 015
     Dates: start: 20210805, end: 20220222

REACTIONS (4)
  - Embedded device [Recovering/Resolving]
  - Post procedural haemorrhage [Recovering/Resolving]
  - Abdominal pain lower [Recovering/Resolving]
  - Dyspareunia [Recovering/Resolving]

NARRATIVE: CASE EVENT DATE: 20220201
